FAERS Safety Report 8473985-4 (Version None)
Quarter: 2012Q2

REPORT INFORMATION
  Report Type: 
  Country: None (occurrence: None)
  Receive Date: 20120628
  Receipt Date: 20120306
  Transmission Date: 20120825
  Serious: Yes (Other)
  Sender: FDA-Public Use
  Company Number: US-MYLANLABS-2012S1005117

PATIENT
  Age: 41 Year
  Sex: Female

DRUGS (7)
  1. LORAZEPAM [Concomitant]
  2. CLOZAPINE [Suspect]
     Route: 048
     Dates: start: 20120125, end: 20120228
  3. CLOZAPINE [Suspect]
     Route: 048
     Dates: start: 20120302
  4. CARBAMAZEPINE [Concomitant]
  5. BENZTROPINE MESYLATE [Concomitant]
  6. NAPROXEN [Concomitant]
  7. LEVOTHYROXINE [Concomitant]

REACTIONS (1)
  - GRANULOCYTOPENIA [None]
